FAERS Safety Report 13156294 (Version 1)
Quarter: 2017Q1

REPORT INFORMATION
  Report Type: Report from Study
  Country: US (occurrence: US)
  Receive Date: 20170126
  Receipt Date: 20170126
  Transmission Date: 20170428
  Serious: Yes (Hospitalization)
  Sender: FDA-Public Use
  Company Number: US-PFIZER INC-2016554372

PATIENT
  Age: 65 Year
  Sex: Female
  Weight: 61.1 kg

DRUGS (11)
  1. LASIX [Concomitant]
     Active Substance: FUROSEMIDE
     Indication: OEDEMA PERIPHERAL
     Dosage: 20 MG, QD
     Route: 048
     Dates: start: 20160624
  2. NEXIUM [Concomitant]
     Active Substance: ESOMEPRAZOLE MAGNESIUM
     Indication: GASTROOESOPHAGEAL REFLUX DISEASE
     Dosage: 40 MG, QD
     Route: 048
     Dates: start: 20160108
  3. MORPHINE SULFATE. [Suspect]
     Active Substance: MORPHINE SULFATE
     Indication: HEADACHE
     Dosage: 4 MG, TWICE WITHIN ONE HOUR
     Route: 042
     Dates: start: 20161124, end: 20161124
  4. LOMOTIL [Concomitant]
     Active Substance: ATROPINE SULFATE\DIPHENOXYLATE HYDROCHLORIDE
     Indication: PROPHYLAXIS
     Dosage: [ATROPINE 0.25 MG]/ [DIPHENOXYLATE 2.5MG], PRN
     Route: 048
     Dates: start: 20100622
  5. ATIVAN [Concomitant]
     Active Substance: LORAZEPAM
     Indication: INSOMNIA
     Dosage: 1 MG, PRN
     Route: 048
     Dates: start: 20150123
  6. CRESTOR [Concomitant]
     Active Substance: ROSUVASTATIN CALCIUM
     Indication: HYPERCHOLESTEROLAEMIA
     Dosage: 5 MG, QD
     Route: 048
     Dates: start: 20160129
  7. ASPIRIN /00002701/ [Concomitant]
     Active Substance: ASPIRIN
     Indication: THROMBOSIS PROPHYLAXIS
     Dosage: 325 MG, QD
     Route: 048
     Dates: start: 20140506
  8. PF-06463922 [Suspect]
     Active Substance: LORLATINIB
     Indication: NON-SMALL CELL LUNG CANCER
     Dosage: 100 MG, ONCE DAILY FOR 21 DAY CYCLE
     Route: 048
     Dates: start: 20160108, end: 20161125
  9. METADATE [Concomitant]
     Active Substance: METHYLPHENIDATE HYDROCHLORIDE
     Dosage: 20 MG, QD
     Route: 048
     Dates: start: 20150508
  10. IMITREX [Concomitant]
     Active Substance: SUMATRIPTAN SUCCINATE
     Indication: MIGRAINE
     Dosage: 50 MG, PRN
     Route: 048
     Dates: start: 20070402
  11. ZOFRAN [Concomitant]
     Active Substance: ONDANSETRON HYDROCHLORIDE
     Indication: PROPHYLAXIS OF NAUSEA AND VOMITING
     Dosage: 8 MG, PRN
     Route: 048
     Dates: start: 20101228, end: 20160115

REACTIONS (1)
  - Mental status changes [Recovered/Resolved]

NARRATIVE: CASE EVENT DATE: 20161125
